FAERS Safety Report 20968214 (Version 2)
Quarter: 2022Q3

REPORT INFORMATION
  Report Type: Spontaneous
  Country: TR (occurrence: TR)
  Receive Date: 20220616
  Receipt Date: 20220707
  Transmission Date: 20221027
  Serious: Yes (Other)
  Sender: FDA-Public Use
  Company Number: TR-PFIZER INC-PV202200001558

PATIENT
  Age: 69 Year
  Sex: Male

DRUGS (3)
  1. SUTENT [Suspect]
     Active Substance: SUNITINIB MALATE
     Indication: Metastatic renal cell carcinoma
     Dosage: 50 MG
  2. SUTENT [Suspect]
     Active Substance: SUNITINIB MALATE
     Dosage: 50 MG 2 WEEKS USE , 1 WEEK OFF
  3. SUTENT [Suspect]
     Active Substance: SUNITINIB MALATE
     Dosage: 37.5  (2/1)

REACTIONS (6)
  - Eye haemorrhage [Unknown]
  - Neutropenia [Unknown]
  - Pruritus [Unknown]
  - Palmar erythema [Unknown]
  - Diarrhoea [Unknown]
  - Hypertension [Unknown]
